FAERS Safety Report 8432060-5 (Version None)
Quarter: 2012Q2

REPORT INFORMATION
  Report Type: 
  Country: None (occurrence: None)
  Receive Date: 20120613
  Receipt Date: 20120606
  Transmission Date: 20120825
  Serious: Yes (Other)
  Sender: FDA-Public Use
  Company Number: ZA-SANOFI-AVENTIS-2012SA040220

PATIENT
  Age: 27 Year
  Sex: Female

DRUGS (5)
  1. RIFAMPIN AND ISONIAZID [Suspect]
     Route: 048
     Dates: start: 20120606
  2. RIFAMPIN AND ISONIAZID [Suspect]
     Route: 048
     Dates: start: 20090101
  3. ALL OTHER THERAPEUTIC PRODUCTS [Concomitant]
  4. AMIKACIN [Suspect]
     Route: 042
     Dates: start: 20090101
  5. RIMACTANE [Suspect]
     Indication: TUBERCULOSIS
     Route: 048
     Dates: start: 20120101, end: 20120606

REACTIONS (1)
  - DEAFNESS [None]
